APPROVED DRUG PRODUCT: CINOXACIN
Active Ingredient: CINOXACIN
Strength: 500MG
Dosage Form/Route: CAPSULE;ORAL
Application: A073006 | Product #001
Applicant: TEVA PHARMACEUTICALS USA INC
Approved: Feb 28, 1992 | RLD: No | RS: No | Type: DISCN